FAERS Safety Report 19084897 (Version 1)
Quarter: 2021Q2

REPORT INFORMATION
  Report Type: Spontaneous
  Country: US (occurrence: US)
  Receive Date: 20210401
  Receipt Date: 20210401
  Transmission Date: 20210717
  Serious: Yes (Other)
  Sender: FDA-Public Use
  Company Number: US-BAUSCH-BL-2021-009306

PATIENT
  Age: 83 Year
  Sex: Male

DRUGS (5)
  1. GENTAMICIN. [Suspect]
     Active Substance: GENTAMICIN
     Indication: LACTOBACILLUS INFECTION
     Route: 065
  2. AMPICILLIN [Concomitant]
     Active Substance: AMPICILLIN
     Indication: LACTOBACILLUS INFECTION
  3. GENTAMICIN. [Suspect]
     Active Substance: GENTAMICIN
     Indication: INFECTION
  4. AMPICILLIN [Concomitant]
     Active Substance: AMPICILLIN
     Route: 042
  5. GENTAMICIN. [Suspect]
     Active Substance: GENTAMICIN
     Indication: ENDOCARDITIS

REACTIONS (2)
  - Ototoxicity [Unknown]
  - Dizziness [Unknown]
